FAERS Safety Report 4907057-X (Version None)
Quarter: 2006Q1

REPORT INFORMATION
  Report Type: 
  Country: None (occurrence: None)
  Receive Date: 20060206
  Receipt Date: 20060131
  Transmission Date: 20060701
  Serious: Yes (Hospitalization, Other)
  Sender: FDA-Public Use
  Company Number: USA-2002-0000701

PATIENT
  Age: 46 Year
  Sex: Male

DRUGS (9)
  1. OXYCONTIN [Suspect]
     Indication: PAIN
     Dosage: 80 MG, BID, ORAL; SEE IMAGE
     Route: 048
     Dates: start: 19990101, end: 20010101
  2. OXYCONTIN [Suspect]
     Indication: PAIN
     Dosage: 80 MG, BID, ORAL; SEE IMAGE
     Route: 048
     Dates: start: 19990528
  3. OXYCODONE HCL [Concomitant]
  4. SOMA [Concomitant]
  5. ANAPROX [Concomitant]
  6. AMBIEN [Concomitant]
  7. ELAVIL [Concomitant]
  8. ROXICODONE [Concomitant]
  9. CLONIDINE [Concomitant]

REACTIONS (34)
  - ABDOMINAL PAIN [None]
  - AGITATION [None]
  - ANXIETY [None]
  - BACK INJURY [None]
  - BACK PAIN [None]
  - BRONCHITIS [None]
  - DRUG ABUSER [None]
  - DRUG DEPENDENCE [None]
  - DRUG SCREEN POSITIVE [None]
  - DRUG WITHDRAWAL SYNDROME [None]
  - FATIGUE [None]
  - HYPERHIDROSIS [None]
  - HYPOAESTHESIA [None]
  - INSOMNIA [None]
  - JOINT RANGE OF MOTION DECREASED [None]
  - MALAISE [None]
  - MUSCLE SPASMS [None]
  - MUSCULOSKELETAL DISCOMFORT [None]
  - MUSCULOSKELETAL STIFFNESS [None]
  - MYALGIA [None]
  - MYOFASCIAL PAIN SYNDROME [None]
  - NAUSEA [None]
  - NIGHT SWEATS [None]
  - PAIN IN EXTREMITY [None]
  - PARAESTHESIA [None]
  - REFUSAL OF TREATMENT BY PATIENT [None]
  - RESTLESSNESS [None]
  - SELF-MEDICATION [None]
  - SKIN EXFOLIATION [None]
  - SKIN LESION [None]
  - SOMNOLENCE [None]
  - SUICIDAL IDEATION [None]
  - TINEA CAPITIS [None]
  - UPPER RESPIRATORY TRACT INFECTION [None]
